FAERS Safety Report 12442713 (Version 1)
Quarter: 2016Q2

REPORT INFORMATION
  Report Type: Spontaneous
  Country: US (occurrence: None)
  Receive Date: 20160606
  Receipt Date: 20160606
  Transmission Date: 20160815
  Serious: No
  Sender: FDA-Public Use
  Company Number: None

PATIENT
  Age: 47 Year
  Sex: Male
  Weight: 74.84 kg

DRUGS (1)
  1. DULOXETINE DR [Suspect]
     Active Substance: DULOXETINE
     Route: 048

REACTIONS (2)
  - Product commingling [None]
  - Drug dispensing error [None]

NARRATIVE: CASE EVENT DATE: 20160604
